FAERS Safety Report 7823530-9 (Version None)
Quarter: 2011Q4

REPORT INFORMATION
  Report Type: 
  Country: None (occurrence: None)
  Receive Date: 20111019
  Receipt Date: 20111011
  Transmission Date: 20120403
  Serious: Yes (Hospitalization)
  Sender: FDA-Public Use
  Company Number: CH-UCBSA-042083

PATIENT
  Sex: Female

DRUGS (4)
  1. BONIVA [Concomitant]
     Route: 042
  2. CIMZIA [Suspect]
     Indication: RHEUMATOID ARTHRITIS
     Route: 058
     Dates: start: 20110509, end: 20110808
  3. PREDNISOLONE [Concomitant]
     Dosage: TOTAL DAILY DOSE: 2.5 MG
  4. CALCIMAGON D3 [Concomitant]
     Route: 048

REACTIONS (2)
  - ABSCESS [None]
  - PANNICULITIS [None]
